FAERS Safety Report 7997541-7 (Version None)
Quarter: 2011Q4

REPORT INFORMATION
  Report Type: 
  Country: None (occurrence: None)
  Receive Date: 20111221
  Receipt Date: 20111219
  Transmission Date: 20120403
  Serious: Yes (Other)
  Sender: FDA-Public Use
  Company Number: SE-PFIZER INC-2011307507

PATIENT
  Age: 25 Year
  Sex: Male

DRUGS (1)
  1. ZIPRASIDONE HYDROCHLORIDE [Suspect]
     Dosage: UNK
     Dates: end: 20060101

REACTIONS (2)
  - PHARYNGEAL OEDEMA [None]
  - WEIGHT INCREASED [None]
